FAERS Safety Report 5806073-3 (Version None)
Quarter: 2008Q3

REPORT INFORMATION
  Report Type: 
  Country: None (occurrence: None)
  Receive Date: 20080710
  Receipt Date: 20080708
  Transmission Date: 20090109
  Serious: Yes (Death, Hospitalization)
  Sender: FDA-Public Use
  Company Number: ES-BAYER-200820249GPV

PATIENT
  Age: 68 Year
  Sex: Male
  Weight: 67 kg

DRUGS (7)
  1. SORAFENIB [Suspect]
     Indication: HEPATIC NEOPLASM MALIGNANT
     Dosage: TOTAL DAILY DOSE: 800 MG
     Route: 048
     Dates: start: 20080523, end: 20080619
  2. PROPRANOLOL [Concomitant]
     Indication: PROPHYLAXIS
     Route: 048
     Dates: start: 19590101
  3. PROPRANOLOL [Concomitant]
     Route: 048
  4. ESPIRONOLACTONA [Concomitant]
     Indication: OEDEMA
     Route: 048
     Dates: start: 20070728
  5. OMEPRAZOLE [Concomitant]
     Indication: PROPHYLAXIS
     Route: 048
     Dates: start: 20040101
  6. DOMPERIDONE [Concomitant]
     Indication: DRUG USE FOR UNKNOWN INDICATION
     Route: 048
     Dates: start: 20080509, end: 20080525
  7. AMOXICILLIN + CLAVULANATE POTASSIUM [Concomitant]
     Indication: PNEUMONIA ASPIRATION
     Route: 042

REACTIONS (2)
  - HEPATIC FAILURE [None]
  - VOMITING [None]
